FAERS Safety Report 17724093 (Version 5)
Quarter: 2020Q2

REPORT INFORMATION
  Report Type: Report from Study
  Country: FR (occurrence: FR)
  Receive Date: 20200429
  Receipt Date: 20200519
  Transmission Date: 20200714
  Serious: Yes (Hospitalization)
  Sender: FDA-Public Use
  Company Number: FR-EISAI MEDICAL RESEARCH-EC-2020-073902

PATIENT
  Age: 78 Year
  Sex: Female
  Weight: 63 kg

DRUGS (17)
  1. PEMBROLIZUMAB. [Suspect]
     Active Substance: PEMBROLIZUMAB
     Indication: MALIGNANT MELANOMA STAGE IV
     Route: 041
     Dates: start: 20200407, end: 20200407
  2. LENVATINIB [Suspect]
     Active Substance: LENVATINIB
     Indication: MALIGNANT MELANOMA STAGE IV
  3. LOXEN [Concomitant]
     Dates: start: 20200318, end: 20200428
  4. PRAVASTATIN. [Concomitant]
     Active Substance: PRAVASTATIN
     Dates: start: 200601
  5. LIPANTHYL [Concomitant]
     Active Substance: FENOFIBRATE
     Dates: start: 20200408
  6. ELIQUIS [Concomitant]
     Active Substance: APIXABAN
     Dates: start: 201901
  7. LEVOTHYROX [Concomitant]
     Active Substance: LEVOTHYROXINE
     Dates: start: 20200401
  8. PAROXETINE. [Concomitant]
     Active Substance: PAROXETINE
     Dates: start: 201901
  9. PEMBROLIZUMAB. [Suspect]
     Active Substance: PEMBROLIZUMAB
     Route: 041
     Dates: start: 20200429
  10. LENVATINIB [Suspect]
     Active Substance: LENVATINIB
     Indication: MALIGNANT MELANOMA STAGE III
     Route: 048
     Dates: start: 20200225
  11. ATENOLOL. [Concomitant]
     Active Substance: ATENOLOL
     Dates: start: 200601
  12. LEVOTHYROX [Concomitant]
     Active Substance: LEVOTHYROXINE
     Dates: start: 201301, end: 20200331
  13. ZYMAD [Concomitant]
     Active Substance: CHOLECALCIFEROL
     Dates: start: 200601
  14. BIPRETERAX [Concomitant]
     Active Substance: INDAPAMIDE\PERINDOPRIL
     Dates: start: 200601
  15. ALPRAZOLAM. [Concomitant]
     Active Substance: ALPRAZOLAM
     Dates: start: 200601
  16. PEMBROLIZUMAB. [Suspect]
     Active Substance: PEMBROLIZUMAB
     Indication: MALIGNANT MELANOMA STAGE III
     Route: 041
     Dates: start: 20200225, end: 20200318
  17. ESOMEPRAZOLE. [Concomitant]
     Active Substance: ESOMEPRAZOLE MAGNESIUM
     Dates: start: 200601

REACTIONS (1)
  - Colitis [Not Recovered/Not Resolved]

NARRATIVE: CASE EVENT DATE: 20200414
